FAERS Safety Report 5895588-8 (Version None)
Quarter: 2008Q3

REPORT INFORMATION
  Report Type: 
  Country: None (occurrence: None)
  Receive Date: 20080924
  Receipt Date: 20080320
  Transmission Date: 20090109
  Serious: Yes (Other)
  Sender: FDA-Public Use
  Company Number: US-ASTRAZENECA-2006UW08311

PATIENT
  Age: 51 Year
  Sex: Female
  Weight: 61.2 kg

DRUGS (10)
  1. SEROQUEL [Suspect]
     Indication: BIPOLAR DISORDER
     Route: 048
     Dates: start: 20020101, end: 20050101
  2. CLOZARIL [Concomitant]
  3. GEODON [Concomitant]
     Dates: start: 20050101
  4. HALDOL [Concomitant]
  5. RISPERDAL [Concomitant]
  6. ZYPREXA [Concomitant]
     Dosage: 5 MG - 50 MG
     Dates: start: 20050101
  7. LEXAPRO [Concomitant]
  8. MELLARIL [Concomitant]
  9. EFFEXOR [Concomitant]
  10. PAXIL [Concomitant]

REACTIONS (4)
  - BLOOD CHOLESTEROL INCREASED [None]
  - DIABETES MELLITUS [None]
  - OBESITY [None]
  - PANCREATITIS [None]
